FAERS Safety Report 5685121-8 (Version None)
Quarter: 2008Q1

REPORT INFORMATION
  Report Type: 
  Country: None (occurrence: None)
  Receive Date: 20080328
  Receipt Date: 20080310
  Transmission Date: 20080703
  Serious: Yes (Hospitalization)
  Sender: FDA-Public Use
  Company Number: US-BOEHRINGER INGELHEIM GMBH, GERMANY-2007-BP-02361BP

PATIENT
  Sex: Female
  Weight: 91 kg

DRUGS (16)
  1. MIRAPEX [Suspect]
     Indication: PARKINSON'S DISEASE
     Dates: start: 19991215, end: 20040101
  2. VASERETIC [Concomitant]
  3. SINEMET [Concomitant]
     Indication: PARKINSON'S DISEASE
     Dosage: 75/300
     Dates: start: 19990119, end: 20000301
  4. SINEMET CR [Concomitant]
     Indication: PARKINSON'S DISEASE
     Dosage: 150/600
     Dates: start: 20000309
  5. PEPCID [Concomitant]
     Dates: start: 20000101
  6. COMTAN [Concomitant]
     Dates: start: 20000221
  7. ELDEPRYL [Concomitant]
     Route: 048
  8. PAMELOR [Concomitant]
     Route: 048
  9. VALIUM [Concomitant]
  10. SELEGILINE HCL [Concomitant]
  11. BENZTROPINE MESYLATE [Concomitant]
  12. ALPRAZOLAM [Concomitant]
  13. GABAPENTIN [Concomitant]
  14. PROPOXYPHENE HYDROCHLORIDE [Concomitant]
  15. COGENTIN [Concomitant]
  16. REQUIP [Concomitant]
     Dates: start: 20040101

REACTIONS (12)
  - ANXIETY [None]
  - DEPRESSION [None]
  - ECONOMIC PROBLEM [None]
  - EMOTIONAL DISTRESS [None]
  - FEAR [None]
  - INJURY [None]
  - MENTAL DISORDER [None]
  - OBSESSIVE-COMPULSIVE DISORDER [None]
  - PAIN [None]
  - PATHOLOGICAL GAMBLING [None]
  - STRESS [None]
  - SUICIDAL IDEATION [None]
